FAERS Safety Report 5721046-7 (Version None)
Quarter: 2008Q2

REPORT INFORMATION
  Report Type: 
  Country: None (occurrence: None)
  Receive Date: 20080425
  Receipt Date: 20080417
  Transmission Date: 20081010
  Serious: Yes (Other)
  Sender: FDA-Public Use
  Company Number: CHPA2008US06910

PATIENT
  Age: 5 Year
  Sex: Male

DRUGS (1)
  1. EX-LAX REG STR CHOCOLATED LAX PCS SEN (NCH)(SENNA GLYCOSIDES (CA SALTS [Suspect]
     Indication: CONSTIPATION
     Dosage: 30 MG, QD, ORAL; 30 MG, QW, ORAL; 30 MG, ONCE IN 2 DAYS, ORAL
     Route: 048
     Dates: start: 20070601

REACTIONS (1)
  - DRUG DEPENDENCE [None]
